FAERS Safety Report 7757621-8 (Version None)
Quarter: 2011Q3

REPORT INFORMATION
  Report Type: 
  Country: None (occurrence: None)
  Receive Date: 20110916
  Receipt Date: 20110907
  Transmission Date: 20111222
  Serious: Yes (Death)
  Sender: FDA-Public Use
  Company Number: US-BAYER-2011-030711

PATIENT
  Age: 35 Year
  Sex: Female

DRUGS (3)
  1. YAZ [Suspect]
     Indication: DYSMENORRHOEA
  2. YAZ [Suspect]
     Indication: ORAL CONTRACEPTION
     Dosage: UNK
     Dates: start: 20090301, end: 20091101
  3. YAZ [Suspect]
     Indication: MENSTRUATION IRREGULAR

REACTIONS (3)
  - BLOOD POTASSIUM INCREASED [None]
  - WEIGHT INCREASED [None]
  - MYOCARDIAL INFARCTION [None]
